FAERS Safety Report 11848318 (Version 1)
Quarter: 2015Q4

REPORT INFORMATION
  Report Type: Spontaneous
  Country: US (occurrence: US)
  Receive Date: 20151217
  Receipt Date: 20151217
  Transmission Date: 20160305
  Serious: No
  Sender: FDA-Public Use
  Company Number: US-HOSPIRA-1840621

PATIENT
  Sex: Female

DRUGS (4)
  1. CAFERGOT [Concomitant]
     Active Substance: CAFFEINE\ERGOTAMINE TARTRATE
     Indication: HEADACHE
     Dosage: NOT REPORTED, DURING THE DAY
  2. PETHIDINE HYDROCHLORIDE [Suspect]
     Active Substance: MEPERIDINE
     Indication: MIGRAINE
     Dosage: AT NIGHT
     Route: 030
     Dates: start: 2012
  3. PETHIDINE HYDROCHLORIDE [Suspect]
     Active Substance: MEPERIDINE
     Indication: MIGRAINE
     Dosage: NOT REPORTED
     Route: 030
  4. PETHIDINE HYDROCHLORIDE [Concomitant]
     Active Substance: MEPERIDINE
     Indication: HEADACHE
     Dosage: DURING THE DAY
     Route: 048

REACTIONS (3)
  - Laceration [Recovered/Resolved]
  - Intentional product misuse [Unknown]
  - Product container issue [Recovered/Resolved]

NARRATIVE: CASE EVENT DATE: 2012
